FAERS Safety Report 6713382-2 (Version None)
Quarter: 2010Q2

REPORT INFORMATION
  Report Type: 
  Country: None (occurrence: None)
  Receive Date: 20100503
  Receipt Date: 20100408
  Transmission Date: 20101027
  Serious: No
  Sender: FDA-Public Use
  Company Number: 2010-00381

PATIENT
  Age: 58 Year
  Sex: Female
  Weight: 65.7716 kg

DRUGS (2)
  1. ZICAM COLD REMEDY NASAL GEL [Suspect]
     Dosage: 1 DAY
     Dates: start: 20100406, end: 20100407
  2. LEVOXYL [Concomitant]

REACTIONS (4)
  - ANOSMIA [None]
  - ASTHENIA [None]
  - NASAL DISCOMFORT [None]
  - NAUSEA [None]
